FAERS Safety Report 17391042 (Version 1)
Quarter: 2020Q1

REPORT INFORMATION
  Report Type: Report from Study
  Country: CA (occurrence: CA)
  Receive Date: 20200207
  Receipt Date: 20200207
  Transmission Date: 20200409
  Serious: Yes (Other)
  Sender: FDA-Public Use
  Company Number: CA-JNJFOC-20190715276

PATIENT
  Age: 40 Year
  Sex: Female
  Weight: 77.11 kg

DRUGS (1)
  1. STELARA [Suspect]
     Active Substance: USTEKINUMAB
     Indication: CROHN^S DISEASE
     Route: 058
     Dates: start: 20170803

REACTIONS (3)
  - Nasopharyngitis [Not Recovered/Not Resolved]
  - Benign breast neoplasm [Unknown]
  - Breast mass [Unknown]

NARRATIVE: CASE EVENT DATE: 201911
